FAERS Safety Report 25079589 (Version 1)
Quarter: 2025Q1

REPORT INFORMATION
  Report Type: Spontaneous
  Country: GB (occurrence: GB)
  Receive Date: 20250314
  Receipt Date: 20250314
  Transmission Date: 20250409
  Serious: Yes (Death, Other)
  Sender: GENMAB
  Company Number: GB-ABBVIE-6159815

PATIENT
  Sex: Male

DRUGS (1)
  1. EPCORITAMAB [Suspect]
     Active Substance: EPCORITAMAB
     Indication: Product used for unknown indication
     Route: 058

REACTIONS (4)
  - Platelet count decreased [Fatal]
  - Disease progression [Fatal]
  - Myocardial infarction [Recovered/Resolved]
  - Cytokine release syndrome [Recovered/Resolved]
